FAERS Safety Report 25659940 (Version 1)
Quarter: 2025Q3

REPORT INFORMATION
  Report Type: Spontaneous
  Country: US (occurrence: US)
  Receive Date: 20250808
  Receipt Date: 20250808
  Transmission Date: 20251020
  Serious: No
  Sender: BAYER HEALTHCARE LLC
  Company Number: US-BAYER-2025A104366

PATIENT
  Age: 21 Year

DRUGS (2)
  1. MIRAFAST SOFT CHEWS [Suspect]
     Active Substance: MAGNESIUM HYDROXIDE
     Route: 048
     Dates: start: 20250803, end: 20250803
  2. MIRALAX [Suspect]
     Active Substance: POLYETHYLENE GLYCOL 3350

REACTIONS (1)
  - Therapeutic product effect incomplete [Not Recovered/Not Resolved]
